FAERS Safety Report 9054813 (Version 2)
Quarter: 2013Q1

REPORT INFORMATION
  Report Type: Spontaneous
  Country: CH (occurrence: CH)
  Receive Date: 20130209
  Receipt Date: 20130307
  Transmission Date: 20140127
  Serious: Yes (Other)
  Sender: FDA-Public Use
  Company Number: CH-AMGEN-CHESP2013006541

PATIENT
  Age: 80 Year
  Sex: Female
  Weight: 80 kg

DRUGS (3)
  1. PROLIA [Suspect]
     Indication: OSTEOPENIA
     Dosage: 1 DF, Q6MO
     Dates: start: 20120106
  2. PROLIA [Suspect]
     Indication: FRACTURE
  3. SPIRICORT [Concomitant]
     Dosage: 5 MG, QD

REACTIONS (1)
  - Herpes zoster [Recovering/Resolving]
